FAERS Safety Report 6311650-X (Version None)
Quarter: 2009Q3

REPORT INFORMATION
  Report Type: 
  Country: None (occurrence: None)
  Receive Date: 20090817
  Receipt Date: 20090807
  Transmission Date: 20100115
  Serious: Yes (Hospitalization)
  Sender: FDA-Public Use
  Company Number: B0588913A

PATIENT
  Sex: Female

DRUGS (4)
  1. ADVAIR HFA [Suspect]
     Route: 055
  2. ALBUTEROL [Concomitant]
  3. PREDNISONE [Concomitant]
  4. DUONEB [Concomitant]

REACTIONS (3)
  - ASTHMA [None]
  - CARDIAC ARREST [None]
  - RESPIRATORY ARREST [None]
